FAERS Safety Report 8880802 (Version 1)
Quarter: 2012Q4

REPORT INFORMATION
  Report Type: 
  Country: FR (occurrence: FR)
  Receive Date: 20121101
  Receipt Date: 20121101
  Transmission Date: 20130627
  Serious: Yes (Congenital Anomaly)
  Sender: FDA-Public Use
  Company Number: FR-SANOFI-AVENTIS-2012SA077745

PATIENT
  Age: 4 Month
  Sex: Male

DRUGS (2)
  1. LOVENOX [Suspect]
     Indication: DRUG EXPOSURE VIA MOTHER
     Route: 064
     Dates: start: 2011
  2. XAGRID [Suspect]
     Indication: DRUG EXPOSURE VIA MOTHER
     Dosage: strength: 0.5mg
     Route: 064
     Dates: start: 2011

REACTIONS (2)
  - Deafness bilateral [Unknown]
  - Exposure during pregnancy [Unknown]
